FAERS Safety Report 13027437 (Version 1)
Quarter: 2016Q4

REPORT INFORMATION
  Report Type: Spontaneous
  Country: US (occurrence: US)
  Receive Date: 20161214
  Receipt Date: 20161214
  Transmission Date: 20170207
  Serious: No
  Sender: FDA-Public Use
  Company Number: US-ENDO PHARMACEUTICALS INC.-2016-000191

PATIENT
  Sex: Female
  Weight: 63.56 kg

DRUGS (5)
  1. HYDROCODONE BITARTRATE AND ACETAMINOPHEN [Suspect]
     Active Substance: ACETAMINOPHEN\HYDROCODONE BITARTRATE
     Indication: PAIN
     Dosage: 10/325 MG, ONE TABLET EVERY 4 TO 6 HOURS AS NEEDED
     Route: 065
  2. METAXALONE. [Concomitant]
     Active Substance: METAXALONE
     Indication: NECK INJURY
  3. BUTALBITAL, ACETAMINOPHEN, AND CAFFEINE [Concomitant]
     Active Substance: ACETAMINOPHEN\BUTALBITAL\CAFFEINE
     Indication: HEADACHE
  4. METAXALONE. [Concomitant]
     Active Substance: METAXALONE
     Indication: BACK DISORDER
  5. TIZADINE [Concomitant]
     Active Substance: TIZANIDINE HYDROCHLORIDE
     Indication: SLEEP DISORDER

REACTIONS (1)
  - Drug effect decreased [Not Recovered/Not Resolved]
